FAERS Safety Report 4791650-1 (Version None)
Quarter: 2005Q4

REPORT INFORMATION
  Report Type: 
  Country: None (occurrence: None)
  Receive Date: 20051007
  Receipt Date: 20050916
  Transmission Date: 20060501
  Serious: Yes (Hospitalization)
  Sender: FDA-Public Use
  Company Number: CH-BRISTOL-MYERS SQUIBB COMPANY-13118054

PATIENT
  Age: 77 Year
  Sex: Male

DRUGS (8)
  1. GLUCOPHAGE [Suspect]
     Dates: end: 20050622
  2. DIAMOX [Suspect]
     Indication: MACULAR OEDEMA
     Dates: start: 20050612, end: 20050622
  3. BLOPRESS [Suspect]
     Dates: end: 20050622
  4. TOREM [Suspect]
     Dates: end: 20050622
  5. SINTROM [Concomitant]
  6. LESCOL [Concomitant]
  7. LOPRESSOR [Concomitant]
  8. STARLIX [Concomitant]

REACTIONS (2)
  - METABOLIC ACIDOSIS [None]
  - RENAL FAILURE CHRONIC [None]
